FAERS Safety Report 25252294 (Version 1)
Quarter: 2025Q2

REPORT INFORMATION
  Report Type: Spontaneous
  Country: US (occurrence: US)
  Receive Date: 20250429
  Receipt Date: 20250429
  Transmission Date: 20250716
  Serious: No
  Sender: Kenvue
  Company Number: US-KENVUE-20250406459

PATIENT
  Sex: Female

DRUGS (1)
  1. WOMENS ROGAINE UNSCENTED [Suspect]
     Active Substance: MINOXIDIL
     Indication: Alopecia
     Dosage: ONCE A DAY 3/4 CAPFUL
     Route: 061
     Dates: start: 2024

REACTIONS (2)
  - Hair colour changes [Unknown]
  - Overdose [Unknown]

NARRATIVE: CASE EVENT DATE: 20240101
